FAERS Safety Report 21234850 (Version 1)
Quarter: 2022Q3

REPORT INFORMATION
  Report Type: Spontaneous
  Country: US (occurrence: US)
  Receive Date: 20220820
  Receipt Date: 20220820
  Transmission Date: 20221026
  Serious: Yes (Death, Other)
  Sender: FDA-Public Use
  Company Number: US-AMGEN-USASP2022138748

PATIENT
  Age: 77 Year
  Sex: Male

DRUGS (7)
  1. XGEVA [Suspect]
     Active Substance: DENOSUMAB
     Indication: Prostate cancer metastatic
     Dosage: UNK UNK, QMO
     Route: 065
     Dates: start: 202002, end: 202103
  2. XGEVA [Suspect]
     Active Substance: DENOSUMAB
     Indication: Metastases to bone
  3. LYNPARZA [Concomitant]
     Active Substance: OLAPARIB
     Dosage: UNK
     Dates: start: 202101, end: 202103
  4. FIRMAGON [Concomitant]
     Active Substance: DEGARELIX ACETATE
  5. CASODEX [Concomitant]
     Active Substance: BICALUTAMIDE
  6. LUPRON [Concomitant]
     Active Substance: LEUPROLIDE ACETATE
  7. XTANDI [Concomitant]
     Active Substance: ENZALUTAMIDE

REACTIONS (5)
  - Prostate cancer metastatic [Fatal]
  - Fall [Unknown]
  - Tibia fracture [Unknown]
  - Platelet count decreased [Unknown]
  - Oxygen saturation decreased [Unknown]

NARRATIVE: CASE EVENT DATE: 20210101
